FAERS Safety Report 4692189-4 (Version None)
Quarter: 2005Q2

REPORT INFORMATION
  Report Type: 
  Country: None (occurrence: None)
  Receive Date: 20050614
  Receipt Date: 20050601
  Transmission Date: 20051028
  Serious: Yes (Other)
  Sender: FDA-Public Use
  Company Number: 2005083645

PATIENT
  Age: 77 Year
  Sex: Male
  Weight: 75.6 kg

DRUGS (4)
  1. GENOTROPIN [Suspect]
     Indication: HYPOPITUITARISM
     Dosage: 0.2 MG (DAILY),
     Dates: start: 19970819
  2. CORTISONE ACETATE [Concomitant]
  3. TYROSINE (TYROSINE) [Concomitant]
  4. TESTOSTERONE [Concomitant]

REACTIONS (2)
  - NOCTURIA [None]
  - PROSTATE CANCER [None]
